FAERS Safety Report 24544325 (Version 3)
Quarter: 2024Q4

REPORT INFORMATION
  Report Type: Spontaneous
  Country: GB (occurrence: GB)
  Receive Date: 20241024
  Receipt Date: 20241203
  Transmission Date: 20250115
  Serious: Yes (Hospitalization, Other)
  Sender: MYLAN
  Company Number: GB-MYLANLABS-2024M1096049

PATIENT
  Age: 71 Year
  Sex: Female
  Weight: 112.3 kg

DRUGS (3)
  1. CLOZARIL [Suspect]
     Active Substance: CLOZAPINE
     Indication: Schizophrenia
     Dosage: 325 MILLIGRAM, QD (100 MILLIGRAM IN DAY AND 225 MILLIGRAM AT NIGHT)
     Route: 048
     Dates: start: 20200709, end: 20241004
  2. ARIPIPRAZOLE [Concomitant]
     Active Substance: ARIPIPRAZOLE
     Indication: Schizophrenia
     Dosage: 30 MILLIGRAM, QD (ONCE A DAY)
     Route: 048
     Dates: end: 20241022
  3. HALOPERIDOL DECANOATE [Concomitant]
     Active Substance: HALOPERIDOL DECANOATE
     Dosage: 5 MILLIGRAM, TID (THRICE A DAY)
     Route: 030
     Dates: start: 20241004

REACTIONS (5)
  - Hospitalisation [Recovered/Resolved]
  - Schizophrenia [Recovered/Resolved]
  - Urinary tract infection [Unknown]
  - Weight increased [Unknown]
  - Treatment noncompliance [Recovered/Resolved]

NARRATIVE: CASE EVENT DATE: 20240917
